FAERS Safety Report 7048897-3 (Version None)
Quarter: 2010Q4

REPORT INFORMATION
  Report Type: 
  Country: None (occurrence: None)
  Receive Date: 20101012
  Receipt Date: 20101001
  Transmission Date: 20110411
  Serious: Yes (Hospitalization)
  Sender: FDA-Public Use
  Company Number: 019642

PATIENT
  Sex: Female

DRUGS (3)
  1. KEPPRA [Suspect]
     Indication: CONVULSION
     Dosage: ORAL
     Route: 048
     Dates: start: 20091211, end: 20100107
  2. FLUOROURACIL [Concomitant]
  3. CISPLATIN [Concomitant]

REACTIONS (3)
  - CHOLESTASIS [None]
  - CYTOLYTIC HEPATITIS [None]
  - DILATATION INTRAHEPATIC DUCT ACQUIRED [None]
